FAERS Safety Report 25481601 (Version 1)
Quarter: 2025Q2

REPORT INFORMATION
  Report Type: Spontaneous
  Country: US (occurrence: US)
  Receive Date: 20250626
  Receipt Date: 20250626
  Transmission Date: 20250716
  Serious: Yes (Other)
  Sender: NOVO NORDISK
  Company Number: US-NOVOPROD-1462650

PATIENT
  Age: 64 Year
  Sex: Male
  Weight: 137.42 kg

DRUGS (2)
  1. OZEMPIC [Suspect]
     Active Substance: SEMAGLUTIDE
     Indication: Type 2 diabetes mellitus
     Route: 058
     Dates: start: 20250428, end: 20250618
  2. AMOXICILLIN [Concomitant]
     Active Substance: AMOXICILLIN
     Indication: Chest pain
     Dosage: 1000 MG, QD
     Route: 048
     Dates: start: 20250424

REACTIONS (17)
  - Bundle branch block left [Unknown]
  - Chest pain [Unknown]
  - Hyperhidrosis [Unknown]
  - Electrocardiogram ST segment elevation [Unknown]
  - Dyspnoea [Unknown]
  - Sinus tachycardia [Unknown]
  - Pharyngitis streptococcal [Not Recovered/Not Resolved]
  - Appetite disorder [Unknown]
  - Back pain [Unknown]
  - General physical health deterioration [Unknown]
  - Adverse drug reaction [Unknown]
  - Abdominal distension [Unknown]
  - Hyperglycaemia [Unknown]
  - Abdominal pain [Recovered/Resolved]
  - Dizziness [Unknown]
  - Fatigue [Unknown]
  - Glycosylated haemoglobin abnormal [Unknown]
